FAERS Safety Report 8829637 (Version 2)
Quarter: 2012Q4

REPORT INFORMATION
  Report Type: 
  Country: JP (occurrence: JP)
  Receive Date: 20121008
  Receipt Date: 20121016
  Transmission Date: 20130627
  Serious: Yes (Hospitalization)
  Sender: FDA-Public Use
  Company Number: JP-ABBOTT-12P-087-0990694-00

PATIENT
  Age: 77 Year
  Sex: Male

DRUGS (3)
  1. CLARITH [Suspect]
     Indication: NASOPHARYNGITIS
     Dosage: Every day
     Route: 048
     Dates: start: 201206, end: 201206
  2. UNKNOWN DRUG (CALCIUM ANTAGONIST) [Interacting]
     Indication: HYPERTENSION
  3. MEDICON [Concomitant]
     Indication: NASOPHARYNGITIS

REACTIONS (4)
  - Blood pressure decreased [Recovered/Resolved]
  - Drug interaction [Recovered/Resolved]
  - Nasopharyngitis [None]
  - Self-medication [None]
